FAERS Safety Report 4322049-X (Version None)
Quarter: 2004Q1

REPORT INFORMATION
  Report Type: 
  Country: None (occurrence: None)
  Receive Date: 20040319
  Receipt Date: 20040305
  Transmission Date: 20041129
  Serious: Yes (Hospitalization, Other)
  Sender: FDA-Public Use
  Company Number: 2004016074

PATIENT
  Age: 46 Year
  Sex: Female
  Weight: 58.9676 kg

DRUGS (4)
  1. LIPITOR [Suspect]
     Indication: BLOOD CHOLESTEROL INCREASED
     Dosage: 10 MG (DAILY, ORAL
     Route: 048
     Dates: start: 20040101, end: 20040226
  2. CELECOXIB (CELECOXIB) [Concomitant]
  3. CYCLOBENZAPRINE HCL [Concomitant]
  4. HYDROCODONE (HYDROCODONE) [Concomitant]

REACTIONS (6)
  - FALL [None]
  - GRAND MAL CONVULSION [None]
  - HEAD INJURY [None]
  - HYPERTENSION [None]
  - MUSCLE INJURY [None]
  - TREMOR [None]
